FAERS Safety Report 24373256 (Version 2)
Quarter: 2024Q4

REPORT INFORMATION
  Report Type: Spontaneous
  Country: CN (occurrence: CN)
  Receive Date: 20240927
  Receipt Date: 20241003
  Transmission Date: 20250114
  Serious: Yes (Hospitalization)
  Sender: ROCHE
  Company Number: CN-ROCHE-10000089134

PATIENT
  Sex: Female

DRUGS (6)
  1. ADO-TRASTUZUMAB EMTANSINE [Suspect]
     Active Substance: ADO-TRASTUZUMAB EMTANSINE
     Indication: Breast cancer metastatic
     Route: 042
     Dates: start: 20240220, end: 20240220
  2. ADO-TRASTUZUMAB EMTANSINE [Suspect]
     Active Substance: ADO-TRASTUZUMAB EMTANSINE
     Route: 042
     Dates: start: 20240315, end: 20240315
  3. ADO-TRASTUZUMAB EMTANSINE [Suspect]
     Active Substance: ADO-TRASTUZUMAB EMTANSINE
     Route: 042
     Dates: start: 20240408, end: 20240408
  4. ADO-TRASTUZUMAB EMTANSINE [Suspect]
     Active Substance: ADO-TRASTUZUMAB EMTANSINE
     Route: 042
     Dates: start: 20240430, end: 20240430
  5. Amino Polypeptide [Concomitant]
     Indication: Thrombocytopenia
     Route: 048
     Dates: start: 20240227, end: 20240301
  6. Human Interleukin-11 [Concomitant]
     Indication: Thrombocytopenia
     Route: 030
     Dates: start: 20240227, end: 20240301

REACTIONS (2)
  - Chest discomfort [Recovering/Resolving]
  - Myocardial bridging [Recovering/Resolving]

NARRATIVE: CASE EVENT DATE: 20240315
